FAERS Safety Report 7921918-9 (Version None)
Quarter: 2011Q4

REPORT INFORMATION
  Report Type: 
  Country: None (occurrence: None)
  Receive Date: 20111117
  Receipt Date: 20111111
  Transmission Date: 20120403
  Serious: Yes (Other)
  Sender: FDA-Public Use
  Company Number: JP-ROCHE-1010500

PATIENT
  Age: 55 Year
  Sex: Female

DRUGS (3)
  1. XELODA [Suspect]
     Indication: PRODUCT USED FOR UNKNOWN INDICATION
     Route: 048
     Dates: start: 20110825, end: 20110922
  2. VALPROATE SODIUM [Concomitant]
     Dosage: DOSAGE IS UNCERTAIN.
     Route: 048
     Dates: start: 20110812, end: 20110912
  3. TYKERB [Concomitant]
     Dosage: DOSAGE IS UNCERTAIN.
     Route: 048

REACTIONS (7)
  - LIVEDO RETICULARIS [None]
  - STOMATITIS [None]
  - DIARRHOEA [None]
  - PROTEIN C DECREASED [None]
  - C-REACTIVE PROTEIN INCREASED [None]
  - PYREXIA [None]
  - EMBOLISM [None]
